FAERS Safety Report 8086675-7 (Version None)
Quarter: 2012Q1

REPORT INFORMATION
  Report Type: 
  Country: None (occurrence: None)
  Receive Date: 20120128
  Receipt Date: 20110611
  Transmission Date: 20120608
  Serious: No
  Sender: FDA-Public Use
  Company Number: US-ABBOTT-11P-163-0731798-00

PATIENT
  Age: 13 Year
  Sex: Male

DRUGS (7)
  1. APRISO [Concomitant]
     Indication: CROHN'S DISEASE
  2. HUMIRA [Suspect]
     Indication: CROHN'S DISEASE
     Dates: start: 20110401, end: 20110611
  3. OMEPRAZOLE [Concomitant]
     Indication: PROPHYLAXIS AGAINST GASTROINTESTINAL ULCER
  4. ACETAMINOPHEN [Concomitant]
     Indication: HEADACHE
  5. ALLEGRA [Concomitant]
     Indication: SEASONAL ALLERGY
  6. HUMIRA [Suspect]
     Dates: start: 20110611
  7. PREDNISONE TAB [Concomitant]
     Indication: INFLAMMATION

REACTIONS (2)
  - INJECTION SITE HAEMORRHAGE [None]
  - CONTUSION [None]
